FAERS Safety Report 6770673-7 (Version None)
Quarter: 2010Q2

REPORT INFORMATION
  Report Type: 
  Country: None (occurrence: None)
  Receive Date: 20100615
  Receipt Date: 20100607
  Transmission Date: 20101027
  Serious: Yes (Death, Hospitalization)
  Sender: FDA-Public Use
  Company Number: CA-ABBOTT-10P-028-0646135-00

PATIENT
  Sex: Male
  Weight: 63.56 kg

DRUGS (1)
  1. LUPRON DEPOT [Suspect]
     Indication: PROSTATE CANCER
     Dates: start: 20091016, end: 20100108

REACTIONS (3)
  - HAEMORRHAGE URINARY TRACT [None]
  - INTESTINAL OBSTRUCTION [None]
  - THROMBOSIS [None]
